FAERS Safety Report 10047536 (Version 1)
Quarter: 2014Q1

REPORT INFORMATION
  Report Type: Spontaneous
  Country: US (occurrence: US)
  Receive Date: 20140331
  Receipt Date: 20140331
  Transmission Date: 20141002
  Serious: Yes (Other)
  Sender: FDA-Public Use
  Company Number: US-BAYER-2014-045118

PATIENT
  Age: 49 Year
  Sex: Female

DRUGS (8)
  1. YASMIN [Suspect]
     Dosage: UNK
     Dates: end: 20070822
  2. TOPROL [Concomitant]
  3. DIOVAN [Concomitant]
  4. SYNTHROID [Concomitant]
  5. IBUPROFEN [Concomitant]
  6. PRILOSEC [Concomitant]
  7. FUROSEMIDE [Concomitant]
  8. CALCIUM CITRATE [Concomitant]

REACTIONS (1)
  - Deep vein thrombosis [Recovered/Resolved]
